FAERS Safety Report 17556098 (Version 2)
Quarter: 2020Q2

REPORT INFORMATION
  Report Type: Spontaneous
  Country: US (occurrence: US)
  Receive Date: 20200318
  Receipt Date: 20200618
  Transmission Date: 20200713
  Serious: No
  Sender: FDA-Public Use
  Company Number: US-THERAPEUTICSMD-2020TMD00911

PATIENT
  Age: 66 Year
  Sex: Female
  Weight: 67.57 kg

DRUGS (10)
  1. TOPROL XL [Concomitant]
     Active Substance: METOPROLOL SUCCINATE
  2. MULTIVITAMIN [Concomitant]
     Active Substance: VITAMINS
  3. CELERY SEED [Concomitant]
     Active Substance: CELERY SEED
  4. IMVEXXY [Suspect]
     Active Substance: ESTRADIOL
     Indication: ATROPHIC VULVOVAGINITIS
     Dosage: 4 ?G, 2X/WEEK BEFORE BED
     Route: 067
     Dates: start: 20190426, end: 20200201
  5. IMVEXXY [Suspect]
     Active Substance: ESTRADIOL
     Dosage: 4 ?G, 1X/DAY BEFORE BED
     Route: 067
     Dates: start: 20190412, end: 20190425
  6. LUTEIN [Concomitant]
     Active Substance: LUTEIN
  7. KRILL OIL [Concomitant]
     Active Substance: DIETARY SUPPLEMENT\KRILL OIL
  8. VITAMIN D [Concomitant]
     Active Substance: VITAMIN D NOS
  9. MILK THISTLE [Concomitant]
     Active Substance: DIETARY SUPPLEMENT\HERBALS\MILK THISTLE
  10. STRONTIUM [Concomitant]
     Active Substance: STRONTIUM

REACTIONS (2)
  - Axillary pain [Recovering/Resolving]
  - Breast pain [Recovering/Resolving]

NARRATIVE: CASE EVENT DATE: 201911
